FAERS Safety Report 15602961 (Version 5)
Quarter: 2019Q1

REPORT INFORMATION
  Report Type: Report from Study
  Country: GB (occurrence: GB)
  Receive Date: 20181109
  Receipt Date: 20190319
  Transmission Date: 20190417
  Serious: Yes (Death, Hospitalization)
  Sender: FDA-Public Use
  Company Number: GB-PFIZER INC-2018461299

PATIENT
  Age: 56 Year
  Sex: Male

DRUGS (4)
  1. DINUTUXIMAB [Suspect]
     Active Substance: DINUTUXIMAB
     Indication: SMALL CELL LUNG CANCER
     Dosage: UNK, CYCLIC 1
     Route: 041
     Dates: start: 20180918
  2. DINUTUXIMAB [Suspect]
     Active Substance: DINUTUXIMAB
     Dosage: 35 MG TDD, CYCLIC 2
     Route: 041
     Dates: start: 20181010
  3. IRINOTECAN HCL [Suspect]
     Active Substance: IRINOTECAN HYDROCHLORIDE
     Indication: SMALL CELL LUNG CANCER
     Dosage: UNK, CYCLIC 1
     Route: 041
     Dates: start: 20180918
  4. IRINOTECAN HCL [Suspect]
     Active Substance: IRINOTECAN HYDROCHLORIDE
     Dosage: 770 MG TDD, CYCLIC 2
     Route: 041
     Dates: start: 20181010

REACTIONS (3)
  - Myocardial infarction [Fatal]
  - Hypercalcaemia [Unknown]
  - Coronary artery disease [Not Recovered/Not Resolved]

NARRATIVE: CASE EVENT DATE: 20181018
